FAERS Safety Report 7440036-X (Version None)
Quarter: 2011Q2

REPORT INFORMATION
  Report Type: 
  Country: None (occurrence: None)
  Receive Date: 20110427
  Receipt Date: 20110331
  Transmission Date: 20111010
  Serious: Yes (Life-Threatening, Hospitalization, Other)
  Sender: FDA-Public Use
  Company Number: US-BAYER-201013046NA

PATIENT
  Age: 46 Year
  Sex: Female
  Weight: 65.76 kg

DRUGS (1)
  1. YASMIN [Suspect]
     Indication: PRODUCT USED FOR UNKNOWN INDICATION
     Dosage: AS USED DOSE: UNK
     Route: 048
     Dates: start: 20070801, end: 20080201

REACTIONS (3)
  - THROMBOSIS [None]
  - CONVULSION [None]
  - CEREBROVASCULAR ACCIDENT [None]
